FAERS Safety Report 11265011 (Version 3)
Quarter: 2015Q4

REPORT INFORMATION
  Report Type: Report from Study
  Country: US (occurrence: US)
  Receive Date: 20150713
  Receipt Date: 20151020
  Transmission Date: 20160304
  Serious: Yes (Disabling)
  Sender: FDA-Public Use
  Company Number: US-JNJFOC-20150706288

PATIENT
  Sex: Female

DRUGS (13)
  1. REMICADE [Suspect]
     Active Substance: INFLIXIMAB
     Indication: RHEUMATOID ARTHRITIS
     Route: 042
     Dates: start: 201502, end: 20150611
  2. METHOTREXATE [Concomitant]
     Active Substance: METHOTREXATE
     Indication: RHEUMATOID ARTHRITIS
     Route: 065
  3. METROCREAM [Concomitant]
     Active Substance: METRONIDAZOLE
     Indication: ROSACEA
     Route: 065
  4. IMITREX [Concomitant]
     Active Substance: SUMATRIPTAN\SUMATRIPTAN SUCCINATE
     Indication: HEADACHE
     Dosage: UP TO 4 TAB AT HEADACHE ONSET. REPEAT EERY 2 HOURS IF NEEDED. MAX DOSE 200MG PER DAY.
     Route: 065
     Dates: start: 20150707
  5. METOPROLOL SUCCINATE. [Concomitant]
     Active Substance: METOPROLOL SUCCINATE
     Route: 065
  6. CYCLOBENZAPRINE HCL [Concomitant]
     Active Substance: CYCLOBENZAPRINE HYDROCHLORIDE
     Dosage: ONE TAB IN Q12 (UNSPECIFIED)
     Route: 065
     Dates: start: 20150515
  7. REMICADE [Suspect]
     Active Substance: INFLIXIMAB
     Indication: ANKYLOSING SPONDYLITIS
     Route: 042
     Dates: start: 201502, end: 20150611
  8. METHOTREXATE [Concomitant]
     Active Substance: METHOTREXATE
     Indication: ANKYLOSING SPONDYLITIS
     Route: 065
  9. IMITREX [Concomitant]
     Active Substance: SUMATRIPTAN\SUMATRIPTAN SUCCINATE
     Indication: HEADACHE
     Dosage: UP TO 4 TAB AT HEADACHE ONSET. REPEAT EERY 2 HOURS IF NEEDED. MAX DOSE 200MG PER DAY.
     Route: 065
  10. METOPROLOL [Concomitant]
     Active Substance: METOPROLOL
     Indication: HEART RATE
     Route: 065
     Dates: start: 2008
  11. FLEXERILS [Concomitant]
     Indication: MUSCLE SPASMS
     Route: 065
     Dates: start: 2013
  12. METROCREAM [Concomitant]
     Active Substance: METRONIDAZOLE
     Indication: ROSACEA
     Route: 065
     Dates: start: 20150904
  13. CYCLOBENZAPRINE HCL [Concomitant]
     Active Substance: CYCLOBENZAPRINE HYDROCHLORIDE
     Dosage: ONE TAB IN Q12 (UNSPECIFIED)
     Route: 065

REACTIONS (6)
  - Lupus-like syndrome [Recovering/Resolving]
  - Fluid retention [Not Recovered/Not Resolved]
  - Migraine [Not Recovered/Not Resolved]
  - Headache [Not Recovered/Not Resolved]
  - Fatigue [Not Recovered/Not Resolved]
  - Photosensitivity reaction [Not Recovered/Not Resolved]

NARRATIVE: CASE EVENT DATE: 2015
